FAERS Safety Report 11166942 (Version 1)
Quarter: 2015Q2

REPORT INFORMATION
  Report Type: Spontaneous
  Country: JP (occurrence: None)
  Receive Date: 20150603
  Receipt Date: 20150603
  Transmission Date: 20150821
  Serious: Yes (Hospitalization, Disabling, Other)
  Sender: FDA-Public Use
  Company Number: 2015SCAL000248

PATIENT
  Age: 52 Year
  Sex: Male

DRUGS (2)
  1. ANTIBIOTIC /00011701/ (CHLORAMPHENICOL) [Concomitant]
  2. METRONIDAZOLE (METRONIDAZOLE) UNKNOWN [Suspect]
     Active Substance: METRONIDAZOLE
     Indication: RETROPERITONEAL ABSCESS
     Dosage: 250 G, CUMULATIVE TOTAL DOSE
     Route: 048

REACTIONS (1)
  - Toxic encephalopathy [None]
